FAERS Safety Report 9950647 (Version 1)
Quarter: 2014Q1

REPORT INFORMATION
  Report Type: Report from Study
  Country: AT (occurrence: AT)
  Receive Date: 20140304
  Receipt Date: 20140304
  Transmission Date: 20141002
  Serious: Yes (Death)
  Sender: FDA-Public Use
  Company Number: PHHY2014AT025826

PATIENT
  Sex: Female
  Weight: 65 kg

DRUGS (2)
  1. EVEROLIMUS [Suspect]
     Indication: BREAST CANCER
     Dosage: 5 MG, DAILY
     Dates: start: 20130821
  2. EXEMESTAN [Concomitant]
     Indication: BREAST CANCER
     Dosage: 25 MG, DAILY
     Dates: start: 20130821

REACTIONS (1)
  - Death [Fatal]
